FAERS Safety Report 9585785 (Version 1)
Quarter: 2013Q4

REPORT INFORMATION
  Report Type: Spontaneous
  Country: GB (occurrence: GB)
  Receive Date: 20131003
  Receipt Date: 20131003
  Transmission Date: 20140711
  Serious: Yes (Life-Threatening, Hospitalization)
  Sender: FDA-Public Use
  Company Number: GB-BRISTOL-MYERS SQUIBB COMPANY-19455724

PATIENT
  Age: 13 Year
  Sex: Male
  Weight: 70 kg

DRUGS (5)
  1. ARIPIPRAZOLE [Suspect]
     Indication: ABNORMAL BEHAVIOUR
     Route: 048
     Dates: start: 20120901, end: 20130829
  2. ARIPIPRAZOLE [Suspect]
     Indication: ABNORMAL BEHAVIOUR
     Route: 048
  3. ARIPIPRAZOLE [Suspect]
     Indication: AUTISM SPECTRUM DISORDER
     Route: 048
     Dates: start: 20120901, end: 20130829
  4. ARIPIPRAZOLE [Suspect]
     Indication: AUTISM SPECTRUM DISORDER
     Route: 048
  5. SODIUM VALPROATE [Concomitant]
     Indication: EPILEPSY

REACTIONS (2)
  - Cardiac arrest [Recovering/Resolving]
  - Torsade de pointes [Recovering/Resolving]
